FAERS Safety Report 15596375 (Version 1)
Quarter: 2018Q4

REPORT INFORMATION
  Report Type: Spontaneous
  Country: US (occurrence: US)
  Receive Date: 20181108
  Receipt Date: 20181108
  Transmission Date: 20190205
  Serious: No
  Sender: FDA-Public Use
  Company Number: US-JNJFOC-20181022303

PATIENT
  Age: 41 Year
  Sex: Male
  Weight: 98.43 kg

DRUGS (2)
  1. INVEGA TRINZA [Suspect]
     Active Substance: PALIPERIDONE PALMITATE
     Indication: SCHIZOPHRENIA
     Route: 030
  2. LITHIUM. [Concomitant]
     Active Substance: LITHIUM
     Indication: SCHIZOPHRENIA
     Route: 065

REACTIONS (7)
  - Insomnia [Unknown]
  - Anxiety [Unknown]
  - Energy increased [Not Recovered/Not Resolved]
  - Contusion [Recovered/Resolved]
  - Therapeutic response unexpected [Unknown]
  - Libido increased [Unknown]
  - Inappropriate schedule of product administration [Unknown]

NARRATIVE: CASE EVENT DATE: 20180910
